FAERS Safety Report 5279377-3 (Version None)
Quarter: 2007Q1

REPORT INFORMATION
  Report Type: 
  Country: None (occurrence: None)
  Receive Date: 20070322
  Receipt Date: 20070315
  Transmission Date: 20070707
  Serious: Yes (Death)
  Sender: FDA-Public Use
  Company Number: 144-C5013-07030770

PATIENT
  Age: 64 Year
  Sex: Male
  Weight: 68 kg

DRUGS (5)
  1. CC-5013 (LENALIDOMIDE) (CAPSULES) [Suspect]
     Indication: MULTIPLE MYELOMA
     Dosage: 25 MG, ORAL
     Route: 048
     Dates: start: 20061130, end: 20061211
  2. DEXAMETHASONE TAB [Suspect]
     Indication: MULTIPLE MYELOMA
     Dates: start: 20061101
  3. ALLOPURINOL [Concomitant]
  4. OMEPRAZOLE [Concomitant]
  5. BACTRIM [Concomitant]

REACTIONS (4)
  - ACUTE RESPIRATORY FAILURE [None]
  - ASPIRATION BRONCHIAL [None]
  - DEATH [None]
  - DISEASE PROGRESSION [None]
